FAERS Safety Report 5237681-9 (Version None)
Quarter: 2007Q1

REPORT INFORMATION
  Report Type: 
  Country: None (occurrence: None)
  Receive Date: 20070214
  Receipt Date: 20070202
  Transmission Date: 20070707
  Serious: Yes (Congenital Anomaly)
  Sender: FDA-Public Use
  Company Number: GB-ELI_LILLY_AND_COMPANY-GB200608001955

PATIENT

DRUGS (2)
  1. CYMBALTA [Suspect]
     Dosage: UNK, UNK
     Route: 064
     Dates: start: 20060201
  2. MIRTAZAPINE [Concomitant]
     Dosage: UNK, UNK
     Route: 064
     Dates: end: 20060201

REACTIONS (2)
  - DRUG EXPOSURE DURING PREGNANCY [None]
  - LIMB REDUCTION DEFECT [None]
